FAERS Safety Report 9993980 (Version 1)
Quarter: 2014Q1

REPORT INFORMATION
  Report Type: Spontaneous
  Country: US (occurrence: US)
  Receive Date: 20140310
  Receipt Date: 20140310
  Transmission Date: 20141002
  Serious: No
  Sender: FDA-Public Use
  Company Number: US-AMGEN-USASP2013078280

PATIENT
  Sex: Male

DRUGS (1)
  1. SENSIPAR [Suspect]
     Indication: HYPERPARATHYROIDISM SECONDARY
     Dosage: 30 MG, QD
     Route: 065

REACTIONS (6)
  - Gastrointestinal disorder [Unknown]
  - Defaecation urgency [Recovering/Resolving]
  - Micturition urgency [Recovering/Resolving]
  - Gastrointestinal pain [Recovering/Resolving]
  - Anorectal discomfort [Recovering/Resolving]
  - Anorectal disorder [Recovering/Resolving]
